FAERS Safety Report 8942246 (Version 1)
Quarter: 2012Q4

REPORT INFORMATION
  Report Type: Spontaneous
  Country: US (occurrence: None)
  Receive Date: 20121129
  Receipt Date: 20121129
  Transmission Date: 20130627
  Serious: Yes (Hospitalization)
  Sender: FDA-Public Use
  Company Number: None

PATIENT
  Age: 59 Year
  Sex: Male
  Weight: 102.2 kg

DRUGS (1)
  1. RITUXAN [Suspect]
     Indication: CLL
     Dosage: 39.3ml  (~20mg) once IV
     Route: 042
     Dates: start: 20121002

REACTIONS (6)
  - Nausea [None]
  - Vomiting [None]
  - Loss of consciousness [None]
  - Oxygen saturation decreased [None]
  - Eye movement disorder [None]
  - Posture abnormal [None]
